FAERS Safety Report 18204730 (Version 1)
Quarter: 2020Q3

REPORT INFORMATION
  Report Type: Spontaneous
  Country: US (occurrence: US)
  Receive Date: 20200827
  Receipt Date: 20200827
  Transmission Date: 20201103
  Serious: Yes (Hospitalization)
  Sender: FDA-Public Use
  Company Number: US-JNJFOC-20200825685

PATIENT
  Age: 79 Year
  Sex: Male
  Weight: 64.01 kg

DRUGS (1)
  1. ERLEADA [Suspect]
     Active Substance: APALUTAMIDE
     Indication: PROSTATE CANCER METASTATIC
     Route: 048

REACTIONS (6)
  - Swelling [Unknown]
  - Burns second degree [Unknown]
  - Pyrexia [Unknown]
  - Hypersensitivity [Unknown]
  - Skin exfoliation [Unknown]
  - Blood pressure decreased [Unknown]

NARRATIVE: CASE EVENT DATE: 20200726
